FAERS Safety Report 9566598 (Version 1)
Quarter: 2013Q3

REPORT INFORMATION
  Report Type: Spontaneous
  Country: US (occurrence: US)
  Receive Date: 20130930
  Receipt Date: 20130930
  Transmission Date: 20140515
  Serious: Yes (Death, Other)
  Sender: FDA-Public Use
  Company Number: US-BAXTER-2013BAX037919

PATIENT
  Age: 59 Year
  Sex: Male

DRUGS (1)
  1. OSMITROL INJECTION (MANNITOL INJECTION, USP) [Suspect]
     Indication: RENAL FAILURE ACUTE
     Route: 042

REACTIONS (5)
  - Toxicity to various agents [Not Recovered/Not Resolved]
  - Fluid overload [Not Recovered/Not Resolved]
  - Cardiac failure [Not Recovered/Not Resolved]
  - Lethargy [Not Recovered/Not Resolved]
  - Death [Fatal]
